FAERS Safety Report 6677468-3 (Version None)
Quarter: 2010Q2

REPORT INFORMATION
  Report Type: 
  Country: None (occurrence: None)
  Receive Date: 20100412
  Receipt Date: 20100407
  Transmission Date: 20101027
  Serious: Yes (Death, Hospitalization)
  Sender: FDA-Public Use
  Company Number: A0854309A

PATIENT
  Age: 44 Year
  Sex: Male
  Weight: 56 kg

DRUGS (11)
  1. ZIDOVUDINE [Suspect]
     Indication: HIV INFECTION
     Dosage: 300MG PER DAY
     Route: 048
     Dates: start: 20080325
  2. MARAVIROC [Suspect]
     Indication: HIV INFECTION
     Dosage: 150MG TWICE PER DAY
     Route: 048
     Dates: start: 20080325
  3. DARUNAVIR [Concomitant]
     Dates: start: 20100325
  4. TENOFOVIR [Concomitant]
     Dates: start: 20080325
  5. LAMIVUDINE [Concomitant]
     Dates: start: 20080325
  6. DAPSONE [Concomitant]
     Dates: start: 19960101
  7. FOLINIC ACID [Concomitant]
     Dates: start: 19960101
  8. PYRIMETHAMINE TAB [Concomitant]
     Dates: start: 19960101
  9. LAMOTRIGINE [Concomitant]
     Dates: start: 20020101
  10. CLOBAZAM [Concomitant]
     Dates: start: 20020101
  11. RITONAVIR [Concomitant]
     Dates: start: 20080325

REACTIONS (9)
  - ABDOMINAL PAIN [None]
  - AMNESIA [None]
  - DIARRHOEA [None]
  - FLATULENCE [None]
  - GAIT DISTURBANCE [None]
  - PANCYTOPENIA [None]
  - PNEUMOTHORAX [None]
  - PYREXIA [None]
  - SEPSIS [None]
